FAERS Safety Report 5323107-3 (Version None)
Quarter: 2007Q2

REPORT INFORMATION
  Report Type: 
  Country: None (occurrence: None)
  Receive Date: 20070507
  Receipt Date: 20070427
  Transmission Date: 20071010
  Serious: Yes (Life-Threatening, Hospitalization)
  Sender: FDA-Public Use
  Company Number: CAP07000154

PATIENT
  Age: 54 Year
  Sex: Female

DRUGS (6)
  1. ACTONEL [Suspect]
     Indication: OSTEOPOROSIS
     Dosage: SEE IMAGE
     Route: 048
     Dates: start: 20060701, end: 20070101
  2. ACTONEL [Suspect]
     Indication: OSTEOPOROSIS
     Dosage: SEE IMAGE
     Route: 048
     Dates: start: 20060701
  3. ASACOL [Suspect]
     Indication: COLITIS
     Dosage: 2400 MG TWICE DAILY, ORAL
     Route: 048
  4. CALCIUM (CALCIUM) [Concomitant]
  5. VITAMIN D /00107901/ (ERGOCALCIFEROL) [Concomitant]
  6. SALOFALK /00000301/ (AMINOSALICYLIC ACID) [Concomitant]

REACTIONS (3)
  - PULMONARY EMBOLISM [None]
  - PULMONARY THROMBOSIS [None]
  - THERAPEUTIC RESPONSE UNEXPECTED [None]
